FAERS Safety Report 22665367 (Version 2)
Quarter: 2024Q1

REPORT INFORMATION
  Report Type: Spontaneous
  Country: CH (occurrence: CH)
  Receive Date: 20230703
  Receipt Date: 20240304
  Transmission Date: 20240409
  Serious: Yes (Other)
  Sender: FDA-Public Use
  Company Number: None

PATIENT
  Age: 51 Year
  Sex: Male

DRUGS (2)
  1. DUPIXENT [Suspect]
     Active Substance: DUPILUMAB
     Indication: Dermatitis atopic
     Dosage: 300 MG, QOW
     Route: 058
     Dates: start: 202004, end: 202306
  2. OMEPRAZOLE [Concomitant]
     Active Substance: OMEPRAZOLE
     Dosage: 20 MG, PRN
     Route: 065

REACTIONS (1)
  - Pulmonary embolism [Recovered/Resolved]

NARRATIVE: CASE EVENT DATE: 20230202
